FAERS Safety Report 10458902 (Version 1)
Quarter: 2014Q3

REPORT INFORMATION
  Report Type: Spontaneous
  Country: US (occurrence: US)
  Receive Date: 20140917
  Receipt Date: 20140917
  Transmission Date: 20150326
  Serious: Yes (Other)
  Sender: FDA-Public Use
  Company Number: US-ASTELLAS-2014US012587

PATIENT

DRUGS (1)
  1. LEXISCAN [Suspect]
     Active Substance: REGADENOSON
     Indication: CARDIAC STRESS TEST
     Dosage: UNK, TOTAL DOSE
     Route: 042
     Dates: start: 20140909, end: 20140909

REACTIONS (2)
  - Dyskinesia [Unknown]
  - Slow speech [Unknown]

NARRATIVE: CASE EVENT DATE: 20140909
